FAERS Safety Report 5430506-8 (Version None)
Quarter: 2007Q3

REPORT INFORMATION
  Report Type: 
  Country: None (occurrence: None)
  Receive Date: 20070828
  Receipt Date: 20070813
  Transmission Date: 20080115
  Serious: Yes (Other)
  Sender: FDA-Public Use
  Company Number: 2007RR-09325

PATIENT
  Age: 53 Year
  Sex: Male

DRUGS (6)
  1. CLARITHROMYCIN [Suspect]
     Indication: BRONCHITIS
     Dosage: G, ORAL
     Route: 048
  2. TICLOPIDINE (TICLOPIDINE) [Suspect]
     Dosage: 500 MG
  3. RAMIPRIL [Suspect]
  4. ACETYLSALICYLIC ACID SRT [Concomitant]
  5. FUROSEMIDE [Concomitant]
  6. AMIODARONE HCL [Concomitant]

REACTIONS (1)
  - AGRANULOCYTOSIS [None]
